FAERS Safety Report 7903046-1 (Version None)
Quarter: 2011Q4

REPORT INFORMATION
  Report Type: 
  Country: None (occurrence: None)
  Receive Date: 20111109
  Receipt Date: 20111028
  Transmission Date: 20120403
  Serious: Yes (Hospitalization, Other)
  Sender: FDA-Public Use
  Company Number: US-BAYER-2011-106895

PATIENT
  Age: 36 Year
  Sex: Female

DRUGS (8)
  1. LISINOPRIL [Concomitant]
     Dosage: UNK
     Dates: start: 20010101
  2. PHENERGAN [Concomitant]
  3. LOESTRIN FE 1/20 [Concomitant]
     Dosage: UNK
  4. VICODIN [Concomitant]
  5. YAZ [Suspect]
     Indication: CONTRACEPTION
     Dosage: UNK
     Route: 048
     Dates: start: 20091101, end: 20100101
  6. YAZ [Suspect]
     Indication: ACNE
  7. YAZ [Suspect]
     Indication: MENORRHAGIA
  8. NEXIUM [Concomitant]

REACTIONS (4)
  - GALLBLADDER DISORDER [None]
  - BILIARY DYSKINESIA [None]
  - ABDOMINAL PAIN UPPER [None]
  - CHOLECYSTITIS CHRONIC [None]
